FAERS Safety Report 7723557-1 (Version None)
Quarter: 2011Q3

REPORT INFORMATION
  Report Type: 
  Country: None (occurrence: None)
  Receive Date: 20110901
  Receipt Date: 20110824
  Transmission Date: 20111222
  Serious: Yes (Hospitalization)
  Sender: FDA-Public Use
  Company Number: US-JNJFOC-20110809171

PATIENT
  Sex: Female
  Weight: 71.67 kg

DRUGS (12)
  1. TACLONEX [Concomitant]
  2. NEURONTIN [Concomitant]
  3. LASIX [Concomitant]
  4. REMICADE [Suspect]
     Indication: PSORIASIS
     Route: 042
  5. REMICADE [Suspect]
     Route: 042
     Dates: start: 20090201
  6. METHOTREXATE [Concomitant]
  7. DIGOXIN [Concomitant]
  8. COUMADIN [Suspect]
     Indication: ATRIAL FIBRILLATION
  9. ZOLOFT [Concomitant]
  10. LOPRESSOR [Concomitant]
  11. POTASSIUM CHLORIDE [Concomitant]
  12. ASPIRIN [Concomitant]

REACTIONS (3)
  - PEPTIC ULCER HAEMORRHAGE [None]
  - PNEUMONIA [None]
  - COAGULOPATHY [None]
